FAERS Safety Report 8247036-0 (Version None)
Quarter: 2012Q1

REPORT INFORMATION
  Report Type: 
  Country: None (occurrence: None)
  Receive Date: 20120327
  Receipt Date: 20120313
  Transmission Date: 20120608
  Serious: Yes (Death)
  Sender: FDA-Public Use
  Company Number: TCI2012A01340

PATIENT
  Age: 69 Year
  Sex: Male

DRUGS (2)
  1. ACTOS [Suspect]
     Indication: TYPE 2 DIABETES MELLITUS
     Dosage: 15 MG (15 MG, 1 D)
     Route: 048
     Dates: start: 20091207
  2. SULFONAMIDES, UREA DERIVATIVES [Concomitant]

REACTIONS (1)
  - ACUTE MYOCARDIAL INFARCTION [None]
